FAERS Safety Report 11552312 (Version 4)
Quarter: 2015Q4

REPORT INFORMATION
  Report Type: Spontaneous
  Country: JP (occurrence: JP)
  Receive Date: 20150925
  Receipt Date: 20151022
  Transmission Date: 20160304
  Serious: Yes (Other)
  Sender: FDA-Public Use
  Company Number: JP-009507513-1509JPN012824

PATIENT

DRUGS (12)
  1. DEXART [Suspect]
     Active Substance: DEXAMETHASONE SODIUM PHOSPHATE
     Dosage: 9.9 MG ON DAY 1,2,3,4 FOR 4 DAYS, (6.6MG)
     Route: 065
  2. CISPLATIN. [Concomitant]
     Active Substance: CISPLATIN
     Dosage: 70 MG/M2 ON DAY 1
     Route: 065
  3. GRANISETRON [Concomitant]
     Active Substance: GRANISETRON
     Dosage: 1 MG ON DAY 1
     Route: 065
  4. SODIUM (UNSPECIFIED) [Concomitant]
     Indication: PRODUCT USED FOR UNKNOWN INDICATION
     Dosage: DAILY DOSE UNKNOWN
     Route: 065
  5. MK-0000 [Suspect]
     Active Substance: INVESTIGATIONAL PRODUCT
  6. DEXART [Suspect]
     Active Substance: DEXAMETHASONE SODIUM PHOSPHATE
     Indication: PROPHYLAXIS OF NAUSEA AND VOMITING
     Dosage: 9.9 MG ON DAYS 1, 2, 3, 4, 5, 6 AND 7
     Route: 065
  7. DOCETAXEL. [Concomitant]
     Active Substance: DOCETAXEL
     Indication: CHEMOTHERAPY
     Dosage: 60 MG/M2 ON DAY 4
     Route: 065
  8. CISPLATIN. [Concomitant]
     Active Substance: CISPLATIN
     Indication: CHEMOTHERAPY
     Dosage: 70 MG/M2 ON DAY 4
     Route: 065
  9. FLUOROURACIL. [Concomitant]
     Active Substance: FLUOROURACIL
     Dosage: 750 MG/M2 ON DAY 1,2,3,4,4 AND 5
     Route: 065
  10. GRANISETRON [Concomitant]
     Active Substance: GRANISETRON
     Indication: PRODUCT USED FOR UNKNOWN INDICATION
     Dosage: 1 MG ON DAY 4
     Route: 065
  11. DOCETAXEL. [Concomitant]
     Active Substance: DOCETAXEL
     Dosage: 60 MG/M2 ON DAY 1
     Route: 065
  12. FLUOROURACIL. [Concomitant]
     Active Substance: FLUOROURACIL
     Indication: CHEMOTHERAPY
     Dosage: 1000 MG ON DAY 1,2, 3,4,4 AND 5
     Route: 065

REACTIONS (1)
  - Acute kidney injury [Recovered/Resolved]
